FAERS Safety Report 11684148 (Version 1)
Quarter: 2015Q4

REPORT INFORMATION
  Report Type: Other
  Country: CN (occurrence: CN)
  Receive Date: 20151029
  Receipt Date: 20151029
  Transmission Date: 20160304
  Serious: Yes (Other)
  Sender: FDA-Public Use
  Company Number: CN-APOTEX-2015AP014037

PATIENT

DRUGS (2)
  1. STILNOX [Concomitant]
     Active Substance: ZOLPIDEM TARTRATE
     Indication: PRODUCT USED FOR UNKNOWN INDICATION
     Dosage: UNK
     Route: 065
     Dates: start: 20141230, end: 20150217
  2. PAXIL [Suspect]
     Active Substance: PAROXETINE HYDROCHLORIDE
     Indication: DEPRESSION
     Dosage: 20 MG, QD
     Route: 048
     Dates: start: 20141230, end: 20150217

REACTIONS (2)
  - Myocardial ischaemia [Unknown]
  - Electrocardiogram ST segment abnormal [Unknown]

NARRATIVE: CASE EVENT DATE: 20150210
